FAERS Safety Report 13071373 (Version 3)
Quarter: 2017Q1

REPORT INFORMATION
  Report Type: Report from Study
  Country: CA (occurrence: CA)
  Receive Date: 20161229
  Receipt Date: 20170228
  Transmission Date: 20170428
  Serious: Yes (Other)
  Sender: FDA-Public Use
  Company Number: CA-JNJFOC-20161224342

PATIENT
  Age: 83 Year
  Sex: Male

DRUGS (1)
  1. IMBRUVICA [Suspect]
     Active Substance: IBRUTINIB
     Indication: CHRONIC LYMPHOCYTIC LEUKAEMIA
     Route: 048
     Dates: start: 20161214

REACTIONS (5)
  - Diarrhoea [Recovered/Resolved]
  - Flatulence [Unknown]
  - Vomiting [Not Recovered/Not Resolved]
  - Haemoglobin decreased [Unknown]
  - Haemodialysis [Unknown]

NARRATIVE: CASE EVENT DATE: 20161215
